FAERS Safety Report 8568182 (Version 2)
Quarter: 2014Q1

REPORT INFORMATION
  Report Type: Spontaneous
  Country: US (occurrence: None)
  Receive Date: 20120323
  Receipt Date: 20130305
  Transmission Date: 20141002
  Serious: Yes (Hospitalization)
  Sender: FDA-Public Use
  Company Number: 163-21880-11090591

PATIENT
  Age: 51 Year
  Sex: Female

DRUGS (9)
  1. REVLIMID [Suspect]
     Indication: PLASMA CELL MYELOMA
     Dosage: 25 MG, DAILY X 21 DAYS, PO
     Route: 048
     Dates: start: 20110723
  2. ESTRADIOL [Concomitant]
  3. AMLODIPINE [Concomitant]
  4. DEXAMETHASONE (DEXAMETHASONE) [Concomitant]
  5. LYRICA [Concomitant]
  6. VITAMIN D (ERGOCALCIFEROL) [Concomitant]
  7. ZEMPLAR [Concomitant]
  8. SODIUM BICARBONATE [Concomitant]
  9. ASA (ACETYLSALICYLIC ACID) [Concomitant]

REACTIONS (3)
  - Renal failure [None]
  - Feeling jittery [None]
  - Tremor [None]
